FAERS Safety Report 7383602-2 (Version None)
Quarter: 2011Q1

REPORT INFORMATION
  Report Type: 
  Country: None (occurrence: None)
  Receive Date: 20110325
  Receipt Date: 20110325
  Transmission Date: 20110831
  Serious: Yes (Hospitalization)
  Sender: FDA-Public Use
  Company Number: None

PATIENT
  Sex: Female
  Weight: 16.65 kg

DRUGS (5)
  1. DACTINOMYCIN [Suspect]
     Dosage: .76 MG
  2. ETOPOSIDE [Suspect]
     Dosage: 700 MG
  3. CYCLOPHOSPHAMIDE [Suspect]
     Dosage: 3000 MG
  4. DOXORUBICIN HCL [Suspect]
     Dosage: 31 MG
  5. VINCRISTINE SULFATE [Suspect]
     Dosage: 9 MG

REACTIONS (3)
  - HEPATOMEGALY [None]
  - LIVER FUNCTION TEST ABNORMAL [None]
  - ASCITES [None]
